FAERS Safety Report 7241576-9 (Version None)
Quarter: 2011Q1

REPORT INFORMATION
  Report Type: 
  Country: None (occurrence: None)
  Receive Date: 20110124
  Receipt Date: 20110112
  Transmission Date: 20110831
  Serious: Yes (Hospitalization, Other)
  Sender: FDA-Public Use
  Company Number: US-MERCK-1008USA04022

PATIENT
  Age: 60 Year
  Sex: Female

DRUGS (11)
  1. FOSAMAX [Suspect]
     Indication: OSTEOPENIA
     Route: 048
     Dates: start: 20070612, end: 20100309
  2. DIOVAN [Concomitant]
     Indication: HYPERTENSION
     Route: 048
     Dates: start: 19950101, end: 20100101
  3. FOSAMAX PLUS D [Suspect]
     Indication: OSTEOPOROSIS
     Route: 048
  4. CENTRUM SILVER [Concomitant]
     Dosage: FOR 10 YEARS
     Route: 048
     Dates: start: 19910101
  5. LIPITOR [Concomitant]
     Indication: HYPERCHOLESTEROLAEMIA
     Route: 048
     Dates: start: 20020101, end: 20100101
  6. FOSAMAX PLUS D [Suspect]
     Indication: OSTEOPENIA
     Route: 048
  7. SYNTHROID [Concomitant]
     Indication: HYPOTHYROIDISM
     Route: 048
  8. HYDROCHLOROTHIAZIDE [Concomitant]
     Route: 048
  9. FOSAMAX [Suspect]
     Indication: OSTEOPOROSIS
     Route: 048
     Dates: start: 20070612, end: 20100309
  10. HORMONES (UNSPECIFIED) [Concomitant]
     Route: 048
     Dates: start: 19910101
  11. ACTONEL [Suspect]
     Indication: OSTEOPOROSIS
     Route: 048
     Dates: start: 20100101

REACTIONS (6)
  - BONE SCAN [None]
  - ANAEMIA POSTOPERATIVE [None]
  - TENOSYNOVITIS STENOSANS [None]
  - FEMUR FRACTURE [None]
  - FALL [None]
  - ARTHRALGIA [None]
